FAERS Safety Report 10244168 (Version 1)
Quarter: 2014Q2

REPORT INFORMATION
  Report Type: Spontaneous
  Country: US (occurrence: US)
  Receive Date: 20140618
  Receipt Date: 20140618
  Transmission Date: 20141212
  Serious: Yes (Hospitalization, Disabling, Other)
  Sender: FDA-Public Use
  Company Number: US-GLAXOSMITHKLINE-A1027465A

PATIENT
  Age: 42 Year
  Sex: Female

DRUGS (3)
  1. LAMICTAL [Suspect]
     Indication: BIPOLAR DISORDER
     Dosage: 200MG PER DAY
     Route: 048
  2. LITHIUM [Suspect]
     Indication: AFFECTIVE DISORDER
     Dosage: 900MG UNKNOWN
     Route: 065
  3. SEROQUEL [Concomitant]

REACTIONS (4)
  - Suicidal ideation [Unknown]
  - Delusion [Not Recovered/Not Resolved]
  - Abnormal behaviour [Unknown]
  - Emotional distress [Unknown]
